FAERS Safety Report 16066492 (Version 1)
Quarter: 2019Q1

REPORT INFORMATION
  Report Type: Spontaneous
  Country: US (occurrence: US)
  Receive Date: 20190313
  Receipt Date: 20190313
  Transmission Date: 20190418
  Serious: No
  Sender: FDA-Public Use
  Company Number: US-BIOGEN-2019BI00708751

PATIENT
  Age: 53 Year
  Sex: Female
  Weight: 80.73 kg

DRUGS (5)
  1. AVONEX [Suspect]
     Active Substance: INTERFERON BETA-1A
     Indication: PRODUCT USED FOR UNKNOWN INDICATION
     Dosage: UNK
     Route: 065
     Dates: start: 201901
  2. OMEPRAZOLE. [Concomitant]
     Active Substance: OMEPRAZOLE
     Indication: PRODUCT USED FOR UNKNOWN INDICATION
     Dosage: UNK
     Route: 048
  3. LEVOTHYROXINE. [Concomitant]
     Active Substance: LEVOTHYROXINE
     Indication: PRODUCT USED FOR UNKNOWN INDICATION
     Dosage: UNK
     Route: 048
  4. AMPYRA [Suspect]
     Active Substance: DALFAMPRIDINE
     Indication: MULTIPLE SCLEROSIS
     Dosage: 10 MILLIGRAM, BID
     Route: 048
     Dates: start: 20190210, end: 20190303
  5. AMPYRA [Suspect]
     Active Substance: DALFAMPRIDINE
     Route: 065

REACTIONS (15)
  - Motor dysfunction [Not Recovered/Not Resolved]
  - Drug ineffective [Unknown]
  - Paraesthesia [Recovered/Resolved]
  - Throat irritation [Not Recovered/Not Resolved]
  - Nasopharyngitis [Recovered/Resolved]
  - Pain in extremity [Recovered/Resolved]
  - Arthralgia [Not Recovered/Not Resolved]
  - Headache [Not Recovered/Not Resolved]
  - Gait disturbance [Not Recovered/Not Resolved]
  - Balance disorder [Recovered/Resolved]
  - Condition aggravated [Not Recovered/Not Resolved]
  - Asthenia [Not Recovered/Not Resolved]
  - Fatigue [Not Recovered/Not Resolved]
  - Cough [Not Recovered/Not Resolved]
  - Muscular weakness [Not Recovered/Not Resolved]

NARRATIVE: CASE EVENT DATE: 201901
